FAERS Safety Report 10647899 (Version 1)
Quarter: 2014Q4

REPORT INFORMATION
  Report Type: Spontaneous
  Country: US (occurrence: US)
  Receive Date: 20141212
  Receipt Date: 20141212
  Transmission Date: 20150529
  Serious: Yes (Hospitalization)
  Sender: FDA-Public Use
  Company Number: US-BEH-2014047015

PATIENT
  Age: 17 Year
  Sex: Female
  Weight: 39 kg

DRUGS (12)
  1. ESTROGEN METHYLESTOS DS [Concomitant]
  2. HIZENTRA [Suspect]
     Active Substance: HUMAN IMMUNOGLOBULIN G
     Indication: MULTIPLE CONGENITAL ABNORMALITIES
     Dosage: 1-2 TIMES WEEKLY
     Route: 058
  3. ALL OTHER THERAPEUTIC PRODUCTS [Concomitant]
     Active Substance: UNSPECIFIED INGREDIENT
  4. HIZENTRA [Suspect]
     Active Substance: HUMAN IMMUNOGLOBULIN G
     Indication: IMMUNODEFICIENCY
     Dosage: 1-2 TIMES WEEKLY
     Route: 058
  5. NEXIUM [Concomitant]
     Active Substance: ESOMEPRAZOLE MAGNESIUM
  6. HYDROCORTISONE. [Concomitant]
     Active Substance: HYDROCORTISONE
  7. AMITRIPTYLINE [Concomitant]
     Active Substance: AMITRIPTYLINE
  8. ATENOLOL. [Concomitant]
     Active Substance: ATENOLOL
  9. SENNA [Concomitant]
     Active Substance: SENNA LEAF\SENNOSIDES\SENNOSIDES A AND B
  10. DIPHENHYDRAMINE [Concomitant]
     Active Substance: DIPHENHYDRAMINE
  11. EPIPEN [Concomitant]
     Active Substance: EPINEPHRINE
  12. LEVAQUIN [Concomitant]
     Active Substance: LEVOFLOXACIN

REACTIONS (1)
  - Headache [Unknown]

NARRATIVE: CASE EVENT DATE: 20141127
